FAERS Safety Report 5501883-4 (Version None)
Quarter: 2007Q4

REPORT INFORMATION
  Report Type: 
  Country: None (occurrence: None)
  Receive Date: 20071030
  Receipt Date: 20070813
  Transmission Date: 20080405
  Serious: No
  Sender: FDA-Public Use
  Company Number: US-BAUSCH-2007BL000768

PATIENT
  Age: 66 Year
  Sex: Female

DRUGS (8)
  1. FLUOCINOLONE ACETONIDE INTRAVITREAL IMPLANT (0.5 MG) [Suspect]
     Indication: UVEITIS
     Route: 031
     Dates: start: 20060804, end: 20070430
  2. FLUOCINOLONE ACETONIDE INTRAVITREAL IMPLANT (0.5 MG) [Suspect]
     Route: 031
     Dates: start: 20070501
  3. PRED FORTE [Concomitant]
     Indication: POSTOPERATIVE CARE
     Dates: start: 20060801, end: 20060901
  4. OCUFLOX [Concomitant]
     Indication: POSTOPERATIVE CARE
     Dates: start: 20060801, end: 20060901
  5. ATROPINE [Concomitant]
     Indication: POSTOPERATIVE CARE
     Dates: start: 20060801, end: 20060901
  6. ALPHAGAN [Concomitant]
     Indication: GLAUCOMA
  7. XALATAN /SWE/ [Concomitant]
     Indication: GLAUCOMA
  8. TIMOLOL MALEATE [Concomitant]
     Indication: GLAUCOMA

REACTIONS (1)
  - DRUG INEFFECTIVE [None]
